FAERS Safety Report 6187733-4 (Version None)
Quarter: 2009Q2

REPORT INFORMATION
  Report Type: 
  Country: None (occurrence: None)
  Receive Date: 20090513
  Receipt Date: 20090501
  Transmission Date: 20091009
  Serious: Yes (Hospitalization)
  Sender: FDA-Public Use
  Company Number: US-PFIZER INC-2009196692

PATIENT
  Sex: Female
  Weight: 68.3 kg

DRUGS (11)
  1. PREGABALIN [Suspect]
     Indication: FIBROMYALGIA
     Dosage: 225 MG, 2X/DAY
     Route: 048
     Dates: start: 20090301, end: 20090324
  2. PREGABALIN [Suspect]
     Dosage: 75 MG, 1X/DAY
     Route: 048
     Dates: start: 20090218, end: 20090219
  3. PREGABALIN [Suspect]
     Dosage: 75 MG, 2X/DAY
     Route: 048
     Dates: start: 20090220, end: 20090223
  4. PREGABALIN [Suspect]
     Dosage: 150 MG, 2X/DAY
     Route: 048
     Dates: start: 20090224, end: 20090228
  5. TYLENOL SINUS [Concomitant]
     Dosage: 2
     Route: 048
     Dates: start: 19890101
  6. SALONPAS /JPN/ [Concomitant]
     Dosage: UNK
     Route: 061
     Dates: start: 20060101
  7. TYLENOL [Concomitant]
     Dosage: 650 MG, AS NEEDED
     Route: 048
     Dates: start: 19780101
  8. IBUPROFEN [Concomitant]
     Dosage: 650 MG, AS NEEDED
     Route: 048
     Dates: start: 20060101
  9. KLONOPIN [Concomitant]
     Dosage: 2 MG, AS NEEDED
     Route: 048
     Dates: start: 20080101
  10. ETODOLAC [Concomitant]
     Dosage: 400 MG, AS NEEDED
     Route: 048
     Dates: start: 20080101
  11. NORTRIPTYLINE [Concomitant]
     Dosage: 25 MG, AS NEEDED
     Route: 048
     Dates: start: 20070101

REACTIONS (6)
  - ABDOMINAL DISTENSION [None]
  - ABDOMINAL PAIN UPPER [None]
  - LIVER FUNCTION TEST ABNORMAL [None]
  - OEDEMA PERIPHERAL [None]
  - SYNCOPE [None]
  - VOMITING [None]
